FAERS Safety Report 10518577 (Version 3)
Quarter: 2014Q4

REPORT INFORMATION
  Report Type: Spontaneous
  Country: US (occurrence: US)
  Receive Date: 20141015
  Receipt Date: 20141015
  Transmission Date: 20150528
  Serious: Yes (Other)
  Sender: FDA-Public Use
  Company Number: US-LEO PHARMA-222425

PATIENT
  Sex: Female

DRUGS (1)
  1. PICATO [Suspect]
     Active Substance: INGENOL MEBUTATE
     Indication: ACTINIC KERATOSIS
     Route: 061
     Dates: start: 20130521, end: 20130521

REACTIONS (10)
  - Swelling [Recovering/Resolving]
  - Inappropriate schedule of drug administration [Unknown]
  - Hypersensitivity [Recovering/Resolving]
  - Dyspnoea [Recovering/Resolving]
  - Swollen tongue [Recovering/Resolving]
  - Tongue disorder [Recovering/Resolving]
  - Erythema [Recovering/Resolving]
  - Application site erythema [Recovering/Resolving]
  - Application site swelling [Recovering/Resolving]
  - Incorrect drug administration duration [Recovering/Resolving]
